FAERS Safety Report 8144409-1 (Version None)
Quarter: 2012Q1

REPORT INFORMATION
  Report Type: 
  Country: None (occurrence: None)
  Receive Date: 20120217
  Receipt Date: 20120202
  Transmission Date: 20120608
  Serious: Yes (Other)
  Sender: FDA-Public Use
  Company Number: FR-WATSON-2012-02262

PATIENT
  Age: 58 Year
  Sex: Female

DRUGS (2)
  1. GEMCITABINE [Suspect]
     Indication: NON-SMALL CELL LUNG CANCER
     Dosage: UNK
     Route: 065
  2. PEMETREXED [Suspect]
     Indication: NON-SMALL CELL LUNG CANCER

REACTIONS (3)
  - OEDEMA PERIPHERAL [None]
  - PERIORBITAL OEDEMA [None]
  - CONJUNCTIVITIS [None]
